FAERS Safety Report 7818088-4 (Version None)
Quarter: 2011Q4

REPORT INFORMATION
  Report Type: 
  Country: None (occurrence: None)
  Receive Date: 20111017
  Receipt Date: 20111004
  Transmission Date: 20120403
  Serious: Yes (Hospitalization)
  Sender: FDA-Public Use
  Company Number: JP-PFIZER INC-2011246709

PATIENT
  Age: 69 Year
  Sex: Male

DRUGS (11)
  1. ADALAT [Concomitant]
     Dosage: UNK
     Dates: end: 20110921
  2. LOXONIN [Concomitant]
     Dosage: UNK
     Dates: end: 20110921
  3. AZUCURENIN S [Concomitant]
     Dosage: UNK
     Dates: end: 20110921
  4. MICARDIS [Concomitant]
     Dosage: UNK
     Dates: end: 20110921
  5. ASPIRIN [Concomitant]
     Dosage: UNK
     Dates: end: 20110921
  6. AMARYL [Concomitant]
     Dosage: UNK
     Route: 048
     Dates: end: 20110921
  7. PL GRAN. [Concomitant]
     Dosage: UNK
     Dates: end: 20110921
  8. LIPITOR [Suspect]
     Dosage: 10 MG, UNK
     Route: 048
     Dates: end: 20110921
  9. DEXTROMETHORPHAN [Concomitant]
     Dosage: UNK
     Dates: end: 20110921
  10. ALLOPURINOL [Concomitant]
     Dosage: UNK
     Dates: end: 20110921
  11. ISOSORBIDE DINITRATE [Concomitant]
     Dosage: UNK
     Dates: end: 20110921

REACTIONS (1)
  - PANCREATITIS [None]
